FAERS Safety Report 6917656-1 (Version None)
Quarter: 2010Q3

REPORT INFORMATION
  Report Type: 
  Country: None (occurrence: None)
  Receive Date: 20100810
  Receipt Date: 20100801
  Transmission Date: 20110219
  Serious: Yes (Other)
  Sender: FDA-Public Use
  Company Number: US-AMGEN-QUU428442

PATIENT
  Sex: Male

DRUGS (1)
  1. ENBREL [Suspect]
     Indication: RHEUMATOID ARTHRITIS
     Dates: start: 20060101

REACTIONS (5)
  - FEELING HOT [None]
  - INFLAMMATION [None]
  - KNEE ARTHROPLASTY [None]
  - SHOULDER ARTHROPLASTY [None]
  - SKIN LACERATION [None]
